FAERS Safety Report 7641234-2 (Version None)
Quarter: 2011Q3

REPORT INFORMATION
  Report Type: 
  Country: None (occurrence: None)
  Receive Date: 20110728
  Receipt Date: 20110726
  Transmission Date: 20111222
  Serious: Yes (Death)
  Sender: FDA-Public Use
  Company Number: PHHY2011CA65092

PATIENT
  Sex: Male

DRUGS (3)
  1. CLOZAPINE [Suspect]
     Indication: PARKINSONISM
     Dates: start: 20071210
  2. CLOZAPINE [Suspect]
     Dosage: 50 MG
     Route: 048
     Dates: end: 20110708
  3. CLOZAPINE [Suspect]
     Dosage: 25 MG
     Route: 048
     Dates: start: 20090803

REACTIONS (1)
  - DEMENTIA [None]
